FAERS Safety Report 10366815 (Version 2)
Quarter: 2014Q3

REPORT INFORMATION
  Report Type: Spontaneous
  Country: FR (occurrence: FR)
  Receive Date: 20140807
  Receipt Date: 20140926
  Transmission Date: 20150326
  Serious: Yes (Other)
  Sender: FDA-Public Use
  Company Number: FR-AMGEN-FRASP2014058983

PATIENT
  Age: 42 Year
  Sex: Female

DRUGS (15)
  1. BICARBONATE [Concomitant]
     Active Substance: BICARBONATE ION
     Dosage: UNK
  2. DUROGESIC [Concomitant]
     Active Substance: FENTANYL
     Dosage: 100 MUG/HOUR, 2 PATCHES EVERY 72 HOURS
  3. FUNGIZONE [Concomitant]
     Active Substance: AMPHOTERICIN B
     Dosage: UNK
  4. ELUDRIL                            /02859101/ [Concomitant]
     Dosage: UNK
  5. DIFFU K [Concomitant]
     Active Substance: POTASSIUM CHLORIDE
     Dosage: 2 CAPSULES, TWICE PER DAY
     Route: 048
  6. CORTANCYL [Concomitant]
     Active Substance: PREDNISONE
     Dosage: 10 MG, 1 TABLET IN THE MORNING
  7. LOPERAMIDE [Concomitant]
     Active Substance: LOPERAMIDE
     Dosage: 2 CAPSULES, MAXIMUM 8 PER DAY
  8. VECTIBIX [Suspect]
     Active Substance: PANITUMUMAB
     Indication: DISEASE RECURRENCE
  9. DOLIPRANE [Concomitant]
     Active Substance: ACETAMINOPHEN
     Dosage: 500, 2 TABLETS MORNING, MIDDAY AND EVENING
     Route: 048
  10. LYRICA [Concomitant]
     Active Substance: PREGABALIN
     Dosage: 150, 1 TABLET 2 X DAY, IN THE MORNING AND EVENING
     Route: 048
  11. OXYNORMORO [Concomitant]
     Active Substance: OXYCODONE
     Indication: PAIN
     Dosage: 20 MG, 2 TABLETS EVERY 4 HOURS IF IN PAIN 6X/DAY
  12. VECTIBIX [Suspect]
     Active Substance: PANITUMUMAB
     Indication: ADENOCARCINOMA OF COLON
     Dosage: 380 MG, EVERY 15 DAYS
     Route: 042
     Dates: start: 20140620, end: 20140814
  13. ADEPAL [Concomitant]
     Active Substance: ETHINYL ESTRADIOL\LEVONORGESTREL
     Dosage: UNK
     Route: 048
  14. INEXIUM                            /01479303/ [Concomitant]
     Active Substance: ESOMEPRAZOLE
     Dosage: 40, 1 TABLET IN THE EVENING
     Route: 048
  15. LAROXYL [Concomitant]
     Active Substance: AMITRIPTYLINE
     Dosage: 5 DROPS/DAY

REACTIONS (4)
  - Hepatocellular injury [Recovering/Resolving]
  - Epstein-Barr virus test positive [Unknown]
  - Pain [Unknown]
  - Transaminases increased [Unknown]

NARRATIVE: CASE EVENT DATE: 20140731
